FAERS Safety Report 4604674-1 (Version None)
Quarter: 2005Q2

REPORT INFORMATION
  Report Type: 
  Country: None (occurrence: None)
  Receive Date: 20050223
  Receipt Date: 20041111
  Transmission Date: 20051028
  Serious: No
  Sender: FDA-Public Use
  Company Number: PHEH2004US12208

PATIENT
  Sex: Female

DRUGS (5)
  1. ZELNORM [Suspect]
     Indication: IRRITABLE BOWEL SYNDROME
     Dosage: 6 MG, BID; 3 MG, QD; 3 MG, ONCE/SINGLE
     Dates: start: 20041026, end: 20041028
  2. ZELNORM [Suspect]
     Indication: IRRITABLE BOWEL SYNDROME
     Dosage: 6 MG, BID; 3 MG, QD; 3 MG, ONCE/SINGLE
     Dates: start: 20041029, end: 20041030
  3. ZELNORM [Suspect]
     Indication: IRRITABLE BOWEL SYNDROME
     Dosage: 6 MG, BID; 3 MG, QD; 3 MG, ONCE/SINGLE
     Dates: start: 20041109
  4. DEMEROL [Concomitant]
  5. SUMATRIPTAN (SUMATRIPTAN) [Concomitant]

REACTIONS (7)
  - BLOOD URINE [None]
  - CONDITION AGGRAVATED [None]
  - DYSURIA [None]
  - EYE SWELLING [None]
  - MICTURITION DISORDER [None]
  - OEDEMA PERIPHERAL [None]
  - TINNITUS [None]
